FAERS Safety Report 4996415-3 (Version None)
Quarter: 2006Q2

REPORT INFORMATION
  Report Type: 
  Country: None (occurrence: None)
  Receive Date: 20060505
  Receipt Date: 20060427
  Transmission Date: 20061013
  Serious: Yes (Hospitalization)
  Sender: FDA-Public Use
  Company Number: 2006054272

PATIENT
  Age: 36 Year
  Sex: Male

DRUGS (4)
  1. SULFASALAZINE [Suspect]
     Indication: COLITIS ULCERATIVE
     Dates: start: 20040910, end: 20040901
  2. PREDNISOLONE [Concomitant]
  3. FAMOTIDINE [Concomitant]
  4. CEFOTIAM HYDROCHLORIDE [Concomitant]

REACTIONS (5)
  - ANAEMIA [None]
  - DISSEMINATED INTRAVASCULAR COAGULATION [None]
  - IDIOPATHIC THROMBOCYTOPENIC PURPURA [None]
  - MEGACOLON [None]
  - PANCREATITIS ACUTE [None]
